FAERS Safety Report 5379135-5 (Version None)
Quarter: 2007Q2

REPORT INFORMATION
  Report Type: 
  Country: None (occurrence: None)
  Receive Date: 20070530
  Receipt Date: 20070305
  Transmission Date: 20071010
  Serious: No
  Sender: FDA-Public Use
  Company Number: 2007PV031128

PATIENT
  Age: 70 Year
  Sex: Male

DRUGS (6)
  1. BYETTA [Suspect]
     Indication: GLUCOSE TOLERANCE IMPAIRED
     Dosage: 10 MCG; QPM; SC, 5 MCG; QAM; SC, 5 MCG; BID; SC, 10 MCG; BID; SC
     Route: 058
     Dates: start: 20060101, end: 20060101
  2. BYETTA [Suspect]
     Indication: GLUCOSE TOLERANCE IMPAIRED
     Dosage: 10 MCG; QPM; SC, 5 MCG; QAM; SC, 5 MCG; BID; SC, 10 MCG; BID; SC
     Route: 058
     Dates: start: 20060101, end: 20060101
  3. BYETTA [Suspect]
     Indication: GLUCOSE TOLERANCE IMPAIRED
     Dosage: 10 MCG; QPM; SC, 5 MCG; QAM; SC, 5 MCG; BID; SC, 10 MCG; BID; SC
     Route: 058
     Dates: start: 20060101, end: 20070228
  4. BYETTA [Suspect]
     Indication: GLUCOSE TOLERANCE IMPAIRED
     Dosage: 10 MCG; QPM; SC, 5 MCG; QAM; SC, 5 MCG; BID; SC, 10 MCG; BID; SC
     Route: 058
     Dates: start: 20060101, end: 20070228
  5. ASPIRIN [Concomitant]
  6. BLOOD THINNER [Concomitant]

REACTIONS (4)
  - BLOOD GLUCOSE INCREASED [None]
  - CONTUSION [None]
  - DIZZINESS [None]
  - NAUSEA [None]
